FAERS Safety Report 8397587-3 (Version None)
Quarter: 2012Q2

REPORT INFORMATION
  Report Type: 
  Country: None (occurrence: None)
  Receive Date: 20120524
  Receipt Date: 20120510
  Transmission Date: 20120825
  Serious: No
  Sender: FDA-Public Use
  Company Number: UCM201205-000042

PATIENT
  Age: 5 Year
  Sex: Male

DRUGS (5)
  1. DIVALPROEX SODIUM [Suspect]
  2. LAMOTRIGINE [Suspect]
     Dosage: 100 MG TWO TIMES DAILY
  3. TOPIRAMATE [Suspect]
  4. OXCARBAZEPINE [Suspect]
  5. RISPERIDONE [Suspect]

REACTIONS (10)
  - AGGRESSION [None]
  - MOOD ALTERED [None]
  - RASH [None]
  - COORDINATION ABNORMAL [None]
  - DYSKINESIA [None]
  - CHOREA [None]
  - THROMBOCYTOPENIA [None]
  - GAIT DISTURBANCE [None]
  - ATAXIA [None]
  - MUSCULAR WEAKNESS [None]
